FAERS Safety Report 9188634 (Version 1)
Quarter: 2013Q1

REPORT INFORMATION
  Report Type: Spontaneous
  Country: US (occurrence: US)
  Receive Date: 20130325
  Receipt Date: 20130325
  Transmission Date: 20140127
  Serious: No
  Sender: FDA-Public Use
  Company Number: US-ASTRAZENECA-2013SE15732

PATIENT
  Age: 51 Year
  Sex: Female
  Weight: 112.9 kg

DRUGS (7)
  1. SYMBICORT  PMDI [Suspect]
     Indication: ASTHMA
     Dosage: 160/4.5MCG, 2 PUFFS 2 TIMES DAILY
     Route: 055
     Dates: start: 20130228, end: 20130304
  2. SINGULAIR [Concomitant]
     Indication: ASTHMA
     Dosage: ONE DAILY
     Route: 055
  3. ZYRTEC [Concomitant]
     Indication: ASTHMA
     Dosage: DAILY
     Route: 055
  4. LAMICTAL [Concomitant]
     Indication: DEPRESSION
     Route: 048
  5. WELLBUTRIN [Concomitant]
     Indication: DEPRESSION
     Route: 048
  6. KLONOPIN [Concomitant]
     Indication: PANIC ATTACK
     Route: 048
  7. HYDROCODONE [Concomitant]
     Indication: BACK PAIN
     Route: 048

REACTIONS (2)
  - Back pain [Unknown]
  - Drug dose omission [Unknown]
